FAERS Safety Report 21232494 (Version 1)
Quarter: 2022Q3

REPORT INFORMATION
  Report Type: Report from Study
  Country: DE (occurrence: DE)
  Receive Date: 20220819
  Receipt Date: 20220819
  Transmission Date: 20221026
  Serious: Yes (Hospitalization, Other)
  Sender: FDA-Public Use
  Company Number: DE-MYLANLABS-2022M1087220

PATIENT
  Sex: Female

DRUGS (4)
  1. METHOTREXATE [Suspect]
     Active Substance: METHOTREXATE
     Indication: Rheumatoid arthritis
     Dosage: 10 MILLIGRAM
     Route: 065
     Dates: start: 20170626
  2. METHOTREXATE [Suspect]
     Active Substance: METHOTREXATE
     Dosage: 10 MILLIGRAM
     Route: 065
     Dates: start: 20180117
  3. METHOTREXATE [Suspect]
     Active Substance: METHOTREXATE
     Dosage: 10 MILLIGRAM
     Route: 065
     Dates: start: 20180711
  4. METHOTREXATE [Suspect]
     Active Substance: METHOTREXATE
     Dosage: 10 MILLIGRAM
     Route: 065
     Dates: start: 20190115

REACTIONS (9)
  - Lumbar spinal stenosis [Recovered/Resolved]
  - Respiratory failure [Recovered/Resolved]
  - Epilepsy [Recovered/Resolved]
  - Gastroenteritis [Recovered/Resolved]
  - Arrhythmia [Unknown]
  - Aortic valve incompetence [Unknown]
  - Tricuspid valve incompetence [Unknown]
  - Coronary artery disease [Not Recovered/Not Resolved]
  - Oral herpes [Not Recovered/Not Resolved]

NARRATIVE: CASE EVENT DATE: 20180814
